FAERS Safety Report 16540025 (Version 1)
Quarter: 2019Q3

REPORT INFORMATION
  Report Type: Spontaneous
  Country: CN (occurrence: CN)
  Receive Date: 20190708
  Receipt Date: 20190708
  Transmission Date: 20191004
  Serious: No
  Sender: FDA-Public Use
  Company Number: CN-BEH-2019103832

PATIENT
  Age: 53 Year
  Sex: Female

DRUGS (2)
  1. ALBURX [Suspect]
     Active Substance: ALBUMIN HUMAN
     Route: 042
  2. ALBURX [Suspect]
     Active Substance: ALBUMIN HUMAN
     Dosage: UNK
     Route: 042

REACTIONS (3)
  - Product use issue [Unknown]
  - Accidental exposure to product [Unknown]
  - No adverse event [Unknown]
